FAERS Safety Report 12535449 (Version 2)
Quarter: 2016Q3

REPORT INFORMATION
  Report Type: Spontaneous
  Country: IT (occurrence: IT)
  Receive Date: 20160707
  Receipt Date: 20160728
  Transmission Date: 20161109
  Serious: Yes (Disabling, Other)
  Sender: FDA-Public Use
  Company Number: IT-ACCORD-042082

PATIENT
  Age: 69 Year
  Sex: Female

DRUGS (4)
  1. ZOLOFT [Concomitant]
     Active Substance: SERTRALINE HYDROCHLORIDE
     Dosage: STRENGTH: 50 MG
     Route: 048
  2. ANASTROZOLE ACCORD [Suspect]
     Active Substance: ANASTROZOLE
     Indication: BREAST CANCER
     Dosage: STRENGTH: 1 MG
     Route: 048
     Dates: start: 20151115, end: 20160527
  3. BINOSTO ABIOGEN PHARMA [Concomitant]
     Dosage: STRENGTH: 70 MG
     Route: 048
  4. DIABASE PROGRAMMI SANITARI INTEGRATI [Concomitant]
     Dosage: STRENGTH: 25.000 UI/2.5 ML
     Route: 048

REACTIONS (4)
  - Drop attacks [Recovered/Resolved]
  - Arthralgia [Recovered/Resolved]
  - Gait disturbance [Recovered/Resolved]
  - Joint stiffness [Recovered/Resolved]

NARRATIVE: CASE EVENT DATE: 20151122
